FAERS Safety Report 16413991 (Version 3)
Quarter: 2021Q2

REPORT INFORMATION
  Report Type: Spontaneous
  Country: JP (occurrence: JP)
  Receive Date: 20190611
  Receipt Date: 20210426
  Transmission Date: 20210716
  Serious: Yes (Life-Threatening, Hospitalization, Other)
  Sender: FDA-Public Use
  Company Number: JP-AUROBINDO-AUR-APL-2019-033655

PATIENT
  Age: 66 Year
  Sex: Female

DRUGS (17)
  1. CYCLOPHOSPHAMIDE. [Suspect]
     Active Substance: CYCLOPHOSPHAMIDE
     Indication: PLASMA CELL MYELOMA
     Dosage: SALVAGE VCAP
     Route: 065
  2. DEXAMETHASONE. [Suspect]
     Active Substance: DEXAMETHASONE
     Dosage: 20 MILLIGRAM, CYCLICAL, POM/DEX THERAPY
     Route: 065
  3. LENALIDOMIDE [Suspect]
     Active Substance: LENALIDOMIDE
     Dosage: UNK
     Route: 065
  4. DOXORUBICIN [Suspect]
     Active Substance: DOXORUBICIN
     Indication: PLASMA CELL MYELOMA
     Dosage: 25 MILLIGRAM/SQ. METER, SALVAGE VCAP THERAPY
     Route: 065
  5. CYCLOPHOSPHAMIDE. [Suspect]
     Active Substance: CYCLOPHOSPHAMIDE
     Dosage: 400 MILLIGRAM, PER BODY
     Route: 065
  6. PREDNISOLONE. [Suspect]
     Active Substance: PREDNISOLONE
     Indication: PLASMA CELL MYELOMA
     Dosage: 60 MILLIGRAM/SQ. METER, SALVAGE VCAP THERAPY
     Route: 065
  7. POMALIDOMIDE [Suspect]
     Active Substance: POMALIDOMIDE
     Indication: PLASMA CELL MYELOMA
     Dosage: 4 MILLIGRAM, POM/DEX THERAPY
     Route: 065
  8. MELPHALAN. [Suspect]
     Active Substance: MELPHALAN
     Indication: PLASMA CELL MYELOMA
     Dosage: 200 MILLIGRAM/SQ. METER, HIGH?DOSE MELPHALAN
     Route: 065
  9. DEXAMETHASONE. [Suspect]
     Active Substance: DEXAMETHASONE
     Indication: PLASMA CELL MYELOMA
     Dosage: 40 MILLIGRAM, CYCLICAL, [CBD THERAPY ? ON DAYS
     Route: 065
  10. BORTEZOMIB. [Suspect]
     Active Substance: BORTEZOMIB
     Dosage: 1.3 MILLIGRAM/SQ. METER, CYCLICAL, (ON DAYS 1, 8, 15, AND 22)
     Route: 065
  11. CYCLOPHOSPHAMIDE. [Suspect]
     Active Substance: CYCLOPHOSPHAMIDE
     Dosage: 100 MILLIGRAM, PER BODY ON DAYS 1?4
     Route: 065
  12. LENALIDOMIDE [Suspect]
     Active Substance: LENALIDOMIDE
     Indication: PLASMA CELL MYELOMA
     Dosage: 4 MILLIGRAM, CYCLICAL, [LEN/ DEX THERAPY ?
     Route: 065
  13. VINCRISTINE [Suspect]
     Active Substance: VINCRISTINE
     Dosage: 1 MILLIGRAM, PER BODY ON DAY 1
     Route: 065
  14. DEXAMETHASONE. [Suspect]
     Active Substance: DEXAMETHASONE
     Dosage: 40 MILLIGRAM, CYCLICAL, ([LEN/ DEX THERAPY)
     Route: 065
  15. VINCRISTINE [Suspect]
     Active Substance: VINCRISTINE
     Indication: PLASMA CELL MYELOMA
     Dosage: SALVAGE VCAP THERAPY
     Route: 065
  16. CYCLOPHOSPHAMIDE. [Suspect]
     Active Substance: CYCLOPHOSPHAMIDE
     Dosage: UNK, HIGH DOSE
     Route: 065
  17. BORTEZOMIB. [Suspect]
     Active Substance: BORTEZOMIB
     Indication: PLASMA CELL MYELOMA
     Dosage: CBD THERAPY
     Route: 065

REACTIONS (12)
  - Peritonitis viral [Recovered/Resolved]
  - Urethritis [Recovered/Resolved]
  - Pyrexia [Recovered/Resolved]
  - Cytomegalovirus infection [Unknown]
  - Ureteritis [Recovered/Resolved]
  - Pathogen resistance [Recovered/Resolved]
  - Cystitis [Recovered/Resolved]
  - Pollakiuria [Recovered/Resolved]
  - Hepatic function abnormal [Recovered/Resolved]
  - Adenoviral haemorrhagic cystitis [Recovered/Resolved]
  - Urinary tract infection [Recovered/Resolved]
  - Escherichia infection [Recovered/Resolved]
